FAERS Safety Report 24571355 (Version 5)
Quarter: 2024Q4

REPORT INFORMATION
  Report Type: Spontaneous
  Country: US (occurrence: US)
  Receive Date: 20241101
  Receipt Date: 20241216
  Transmission Date: 20250115
  Serious: No
  Sender: LUPIN
  Company Number: US-LUPIN PHARMACEUTICALS INC.-2024-10662

PATIENT

DRUGS (1)
  1. AMLODIPINE BESYLATE [Suspect]
     Active Substance: AMLODIPINE BESYLATE
     Indication: Blood pressure abnormal
     Dosage: UNK UNK, BID
     Route: 048
     Dates: start: 20240916

REACTIONS (8)
  - Illness [Unknown]
  - Impaired work ability [Unknown]
  - Bedridden [Unknown]
  - Disturbance in attention [Unknown]
  - Joint swelling [Unknown]
  - Peripheral swelling [Unknown]
  - Drug ineffective [Unknown]
  - Product quality issue [Unknown]
